FAERS Safety Report 7407247-0 (Version None)
Quarter: 2011Q2

REPORT INFORMATION
  Report Type: 
  Country: None (occurrence: None)
  Receive Date: 20110411
  Receipt Date: 20110329
  Transmission Date: 20111010
  Serious: Yes (Other)
  Sender: FDA-Public Use
  Company Number: PHHY2011US28616

PATIENT
  Sex: Female

DRUGS (2)
  1. RECLAST [Suspect]
     Dosage: 5 MG
     Route: 042
  2. FORTEO [Concomitant]

REACTIONS (3)
  - COMPRESSION FRACTURE [None]
  - PELVIC FRACTURE [None]
  - HIP FRACTURE [None]
